FAERS Safety Report 10547230 (Version 1)
Quarter: 2014Q4

REPORT INFORMATION
  Report Type: Spontaneous
  Country: CA (occurrence: CA)
  Receive Date: 20141027
  Receipt Date: 20141027
  Transmission Date: 20150529
  Serious: Yes (Hospitalization)
  Sender: FDA-Public Use
  Company Number: PHHY2014CA136658

PATIENT
  Age: 57 Year
  Sex: Female

DRUGS (1)
  1. ONDANSETRON HYDROCHLORIDE SANDOZ [Suspect]
     Active Substance: ONDANSETRON HYDROCHLORIDE
     Route: 042

REACTIONS (4)
  - Troponin increased [Recovered/Resolved]
  - Wheezing [Recovered/Resolved]
  - Blood pressure decreased [Recovered/Resolved]
  - Chest discomfort [Recovered/Resolved]
